FAERS Safety Report 5608657-4 (Version None)
Quarter: 2008Q1

REPORT INFORMATION
  Report Type: 
  Country: None (occurrence: None)
  Receive Date: 20080130
  Receipt Date: 20080118
  Transmission Date: 20080703
  Serious: Yes (Other)
  Sender: FDA-Public Use
  Company Number: JP-PFIZER INC-2008006056

PATIENT
  Age: 4 Year
  Sex: Female

DRUGS (1)
  1. GABAPEN [Suspect]
     Indication: EPILEPSY
     Route: 048

REACTIONS (3)
  - CYANOSIS [None]
  - FALL [None]
  - MANIA [None]
